FAERS Safety Report 23527400 (Version 2)
Quarter: 2024Q1

REPORT INFORMATION
  Report Type: Spontaneous
  Country: US (occurrence: US)
  Receive Date: 20240215
  Receipt Date: 20240226
  Transmission Date: 20240409
  Serious: No
  Sender: FDA-Public Use
  Company Number: US-Emergent Biosolutions-24000020

PATIENT
  Age: 21 Year
  Sex: Female

DRUGS (1)
  1. NARCAN [Suspect]
     Active Substance: NALOXONE HYDROCHLORIDE
     Indication: Overdose
     Dosage: ONE DOSE
     Route: 065
     Dates: start: 20240205, end: 20240205

REACTIONS (4)
  - Somnolence [Recovered/Resolved]
  - Fatigue [Recovered/Resolved]
  - Asthenia [Recovered/Resolved]
  - Dizziness [Recovered/Resolved]

NARRATIVE: CASE EVENT DATE: 20240206
